FAERS Safety Report 4933376-7 (Version None)
Quarter: 2006Q1

REPORT INFORMATION
  Report Type: 
  Country: None (occurrence: None)
  Receive Date: 20060306
  Receipt Date: 20050414
  Transmission Date: 20060701
  Serious: Yes (Disabling, Other)
  Sender: FDA-Public Use
  Company Number: US-MERCK-0504USA02872

PATIENT
  Age: 38 Year
  Sex: Female
  Weight: 79 kg

DRUGS (1)
  1. VIOXX [Suspect]
     Indication: BACK PAIN
     Route: 048
     Dates: start: 19990101, end: 20020101

REACTIONS (8)
  - ARTHRITIS [None]
  - BACK INJURY [None]
  - CARDIAC DISORDER [None]
  - FALL [None]
  - INTERVERTEBRAL DISC DISORDER [None]
  - MYOCARDIAL INFARCTION [None]
  - PRESCRIBED OVERDOSE [None]
  - TRANSIENT ISCHAEMIC ATTACK [None]
